FAERS Safety Report 13438278 (Version 1)
Quarter: 2017Q2

REPORT INFORMATION
  Report Type: Spontaneous
  Country: US (occurrence: US)
  Receive Date: 20170412
  Receipt Date: 20170412
  Transmission Date: 20170830
  Serious: No
  Sender: FDA-Public Use
  Company Number: US-SA-2017SA022761

PATIENT
  Age: 57 Year
  Sex: Female

DRUGS (2)
  1. ALLEGRA [Suspect]
     Active Substance: FEXOFENADINE HYDROCHLORIDE
     Dosage: FREQUENCY BID (SHE TOOK A TABLET AT 8 AM YESTERDAY AND AT 9 PM)
     Route: 048
  2. ALLEGRA ALLERGY [Suspect]
     Active Substance: FEXOFENADINE HYDROCHLORIDE
     Route: 048
     Dates: end: 20170207

REACTIONS (6)
  - Vomiting [Not Recovered/Not Resolved]
  - Nausea [Not Recovered/Not Resolved]
  - Product use issue [Unknown]
  - Flatulence [Not Recovered/Not Resolved]
  - Eructation [Recovering/Resolving]
  - Headache [Not Recovered/Not Resolved]
